FAERS Safety Report 5339683-0 (Version None)
Quarter: 2007Q2

REPORT INFORMATION
  Report Type: 
  Country: None (occurrence: None)
  Receive Date: 20070404
  Receipt Date: 20061002
  Transmission Date: 20071010
  Serious: Yes (Hospitalization)
  Sender: FDA-Public Use
  Company Number: 2006119109

PATIENT
  Age: 20 Year
  Sex: Male

DRUGS (2)
  1. GEODON [Suspect]
     Indication: SCHIZOPHRENIA
     Dosage: 160 MG
  2. CYMBALTA [Suspect]
     Indication: DEPRESSIVE SYMPTOM
     Dosage: 80 MG

REACTIONS (1)
  - HEART RATE DECREASED [None]
